FAERS Safety Report 11745257 (Version 1)
Quarter: 2015Q4

REPORT INFORMATION
  Report Type: Spontaneous
  Country: FR (occurrence: FR)
  Receive Date: 20151117
  Receipt Date: 20151117
  Transmission Date: 20160304
  Serious: Yes (Hospitalization)
  Sender: FDA-Public Use
  Company Number: FR-ALVOGEN-2015-ALVOGEN-019786

PATIENT
  Age: 88 Year
  Sex: Male

DRUGS (4)
  1. ENANTONE LP [Suspect]
     Active Substance: LEUPROLIDE ACETATE
     Indication: NEOPLASM PROSTATE
     Dates: end: 20150906
  2. VASTAREL [Suspect]
     Active Substance: TRIMETAZIDINE DIHYDROCHLORIDE
     Indication: PRODUCT USED FOR UNKNOWN INDICATION
     Route: 048
  3. KARDEGIC [Suspect]
     Active Substance: ASPIRIN LYSINE
     Indication: PRODUCT USED FOR UNKNOWN INDICATION
     Route: 048
  4. TENORMIN [Suspect]
     Active Substance: ATENOLOL
     Indication: PRODUCT USED FOR UNKNOWN INDICATION
     Route: 048

REACTIONS (21)
  - Hypoaesthesia [Unknown]
  - Malaise [Unknown]
  - Rales [None]
  - Paraesthesia [None]
  - Neck pain [None]
  - Blood creatinine increased [None]
  - Blood glucose increased [Unknown]
  - Pain [Unknown]
  - Carotid artery stenosis [None]
  - Chest pain [None]
  - Mobility decreased [Unknown]
  - Pyrexia [Unknown]
  - Creatinine renal clearance decreased [None]
  - Vision blurred [None]
  - Periorbital haematoma [Unknown]
  - Fall [Recovered/Resolved]
  - Head injury [None]
  - Haemoglobin decreased [None]
  - Vertigo [Not Recovered/Not Resolved]
  - Lung disorder [Unknown]
  - Gait disturbance [Unknown]

NARRATIVE: CASE EVENT DATE: 20150906
